FAERS Safety Report 4792443-1 (Version None)
Quarter: 2005Q4

REPORT INFORMATION
  Report Type: 
  Country: None (occurrence: None)
  Receive Date: 20051010
  Receipt Date: 20050630
  Transmission Date: 20060501
  Serious: No
  Sender: FDA-Public Use
  Company Number: US-GLAXOSMITHKLINE-A0564746A

PATIENT
  Sex: Male

DRUGS (1)
  1. BEXXAR [Suspect]
     Route: 042

REACTIONS (1)
  - SKIN DISCOLOURATION [None]
